FAERS Safety Report 6064626-4 (Version None)
Quarter: 2009Q1

REPORT INFORMATION
  Report Type: 
  Country: None (occurrence: None)
  Receive Date: 20090204
  Receipt Date: 20080123
  Transmission Date: 20090719
  Serious: Yes (Hospitalization)
  Sender: FDA-Public Use
  Company Number: A0701989A

PATIENT
  Age: 70 Year
  Sex: Male

DRUGS (15)
  1. ARIXTRA [Suspect]
     Route: 058
     Dates: start: 20071218, end: 20071220
  2. MORPHINE [Concomitant]
     Indication: PAIN
     Dosage: 15MG UNKNOWN
     Route: 042
     Dates: start: 20071217, end: 20071221
  3. CEFAZOLIN [Concomitant]
     Indication: INFECTION PROPHYLAXIS
     Dosage: 1G THREE TIMES PER DAY
     Route: 042
     Dates: start: 20071217, end: 20071218
  4. ACETAMINOPHEN [Concomitant]
     Indication: PAIN
     Dosage: 600MG AS REQUIRED
     Route: 048
     Dates: start: 20071217, end: 20071221
  5. BISACODYL [Concomitant]
     Dosage: 10MG PER DAY
     Route: 048
     Dates: start: 20071217, end: 20071221
  6. CELEBREX [Concomitant]
     Indication: PAIN
     Dosage: 200MG PER DAY
     Route: 048
     Dates: start: 20071217, end: 20071221
  7. DEXAMETHASONE [Concomitant]
     Route: 042
     Dates: start: 20071217, end: 20071217
  8. DESFLURANE [Concomitant]
     Route: 055
     Dates: start: 20071217, end: 20071217
  9. METHOCARBAMOL [Concomitant]
     Dosage: 750MG AS REQUIRED
     Route: 048
     Dates: start: 20071217, end: 20071220
  10. METOCLOPRAMIDE [Concomitant]
     Dosage: 10MG FOUR TIMES PER DAY
     Route: 048
     Dates: start: 20071217, end: 20071220
  11. DIPHENHYDRAMINE HCL [Concomitant]
     Dosage: 50MG UNKNOWN
     Route: 048
     Dates: start: 20071217, end: 20071221
  12. FAMOTIDINE [Concomitant]
     Dosage: 20MG UNKNOWN
     Route: 048
     Dates: start: 20071217, end: 20071221
  13. FENTANYL-75 [Concomitant]
     Route: 042
     Dates: start: 20071217, end: 20071217
  14. FERROUS SULFATE TAB [Concomitant]
     Dosage: 325MG UNKNOWN
     Route: 048
     Dates: start: 20071217, end: 20071221
  15. HYDROCODONE [Concomitant]
     Route: 048
     Dates: start: 20071217, end: 20071221

REACTIONS (1)
  - DEEP VEIN THROMBOSIS [None]
